FAERS Safety Report 19908929 (Version 1)
Quarter: 2021Q4

REPORT INFORMATION
  Report Type: Spontaneous
  Country: US (occurrence: US)
  Receive Date: 20211001
  Receipt Date: 20211001
  Transmission Date: 20220304
  Serious: No
  Sender: FDA-Public Use
  Company Number: US-JNJFOC-20210941430

PATIENT
  Age: 5 Decade
  Sex: Male

DRUGS (1)
  1. MENS ROGAINE EXTRA STRENGTH [Suspect]
     Active Substance: MINOXIDIL
     Indication: Alopecia
     Dosage: 2 GOLF SIZE OF SPRAYS TWICE A DAY
     Route: 065
     Dates: start: 2020

REACTIONS (3)
  - Incorrect dose administered [Unknown]
  - Dandruff [Recovering/Resolving]
  - Application site discolouration [Recovering/Resolving]

NARRATIVE: CASE EVENT DATE: 20200101
